FAERS Safety Report 16740360 (Version 1)
Quarter: 2019Q4

REPORT INFORMATION
  Report Type: Spontaneous
  Country: US (occurrence: US)
  Receive Date: 20190824
  Receipt Date: 20190824
  Transmission Date: 20200122
  Serious: Yes (Disabling, Other)
  Sender: FDA-Public Use
  Company Number: None

PATIENT
  Age: 28 Year
  Sex: Female
  Weight: 96.62 kg

DRUGS (5)
  1. TRAMADOL. [Suspect]
     Active Substance: TRAMADOL
     Dates: start: 20150801
  2. BUPHRION [Concomitant]
  3. ABILIFY [Concomitant]
     Active Substance: ARIPIPRAZOLE
  4. VITAMIN D2 [Concomitant]
     Active Substance: ERGOCALCIFEROL
  5. TIZANIDINE. [Suspect]
     Active Substance: TIZANIDINE

REACTIONS (4)
  - Product tampering [None]
  - Weight decreased [None]
  - Feeding disorder [None]
  - Weight increased [None]

NARRATIVE: CASE EVENT DATE: 20190823
